FAERS Safety Report 7743579-4 (Version None)
Quarter: 2011Q3

REPORT INFORMATION
  Report Type: 
  Country: None (occurrence: None)
  Receive Date: 20110912
  Receipt Date: 20110902
  Transmission Date: 20111222
  Serious: Yes (Hospitalization, Other)
  Sender: FDA-Public Use
  Company Number: US-ASTRAZENECA-2011SE53391

PATIENT
  Age: 59 Year
  Sex: Female

DRUGS (19)
  1. PREMARIN [Concomitant]
     Dosage: APPLY DAILY
     Route: 065
  2. DIAZEPAM [Concomitant]
     Route: 048
  3. DIOVAN [Concomitant]
     Route: 048
  4. COREG [Concomitant]
     Route: 065
  5. CRESTOR [Suspect]
     Route: 048
  6. HUMALOG [Concomitant]
     Route: 065
  7. FLONASE [Concomitant]
     Dosage: 50 MCG/ACT SUSP ONE SPRAY EACH NOSTRIL PER DAY
     Route: 045
  8. GLUCAGEN [Concomitant]
     Dosage: 1 MG SOLR AS DIRECTED
     Route: 065
  9. DOCUSATE [Concomitant]
     Indication: FAECES HARD
     Dosage: AS NEEDED
     Route: 065
  10. FLORINAL [Concomitant]
     Dosage: 5.-325-40 MG 1-2 SIXHOURLY
     Route: 065
  11. REQUIP [Concomitant]
     Route: 065
  12. PERCOCET [Concomitant]
     Dosage: 7.5-325 MG TABLET THREE HOURLY
     Route: 065
  13. LEXAPRO [Concomitant]
     Route: 048
  14. METAMUCIL-2 [Concomitant]
     Dosage: DAILY
     Route: 065
  15. FOSAMAX [Concomitant]
     Route: 048
  16. VITAMIN D [Concomitant]
     Dosage: 1000 UNITS DAILY
     Route: 065
  17. HYDROCHLOROTHIAZIDE [Concomitant]
     Route: 065
  18. DURAGESIC-100 [Concomitant]
     Route: 065
  19. ASPIRIN [Concomitant]
     Route: 048

REACTIONS (34)
  - HYPOGLYCAEMIA [None]
  - HIATUS HERNIA [None]
  - LUNG NEOPLASM [None]
  - SPINAL CORD COMPRESSION [None]
  - ENCEPHALOPATHY [None]
  - NEUROPATHIC ARTHROPATHY [None]
  - ATTENTION DEFICIT/HYPERACTIVITY DISORDER [None]
  - CARDIOMYOPATHY [None]
  - SKIN ULCER [None]
  - FALL [None]
  - UNRESPONSIVE TO STIMULI [None]
  - SCAPULA FRACTURE [None]
  - RESTLESS LEGS SYNDROME [None]
  - HYPERLIPIDAEMIA [None]
  - BRACHIAL PLEXOPATHY [None]
  - DIABETIC KETOACIDOSIS [None]
  - PYELONEPHRITIS [None]
  - HEPATOMEGALY [None]
  - LIVER FUNCTION TEST ABNORMAL [None]
  - IMPAIRED GASTRIC EMPTYING [None]
  - PROTEINURIA [None]
  - TYPE 1 DIABETES MELLITUS [None]
  - BLOOD GLUCOSE INCREASED [None]
  - HYPERTENSION [None]
  - TIBIA FRACTURE [None]
  - ACUTE MYOCARDIAL INFARCTION [None]
  - DIABETIC NEUROPATHY [None]
  - URINARY TRACT INFECTION [None]
  - CARDIAC MURMUR [None]
  - GOITRE [None]
  - BILIARY DILATATION [None]
  - ARTHRITIS [None]
  - MENOPAUSAL SYMPTOMS [None]
  - VITAMIN D DEFICIENCY [None]
